FAERS Safety Report 4767927-2 (Version None)
Quarter: 2005Q3

REPORT INFORMATION
  Report Type: 
  Country: None (occurrence: None)
  Receive Date: 20050913
  Receipt Date: 20050831
  Transmission Date: 20060218
  Serious: Yes (Other)
  Sender: FDA-Public Use
  Company Number: HQWYE214431AUG05

PATIENT
  Age: 26 Year
  Sex: Male

DRUGS (1)
  1. EFFEXOR XR [Suspect]

REACTIONS (3)
  - HOMICIDAL IDEATION [None]
  - MURDER [None]
  - PHYSICAL ASSAULT [None]
